FAERS Safety Report 21072129 (Version 1)
Quarter: 2022Q3

REPORT INFORMATION
  Report Type: Spontaneous
  Country: IN (occurrence: IN)
  Receive Date: 20220712
  Receipt Date: 20220712
  Transmission Date: 20221027
  Serious: Yes (Other)
  Sender: FDA-Public Use
  Company Number: IN-009507513-2207IND002392

PATIENT
  Sex: Female

DRUGS (1)
  1. NOXAFIL [Suspect]
     Active Substance: POSACONAZOLE
     Route: 048

REACTIONS (4)
  - Pericardial effusion [Unknown]
  - Ascites [Unknown]
  - Pleural effusion [Unknown]
  - Oedema peripheral [Unknown]
